FAERS Safety Report 10039425 (Version 8)
Quarter: 2015Q2

REPORT INFORMATION
  Report Type: Report from Study
  Country: AU (occurrence: AU)
  Receive Date: 20140326
  Receipt Date: 20150625
  Transmission Date: 20150821
  Serious: Yes (Hospitalization)
  Sender: FDA-Public Use
  Company Number: PHHY2014AU033037

PATIENT
  Age: 46 Year
  Sex: Male

DRUGS (38)
  1. CLOZARIL [Suspect]
     Active Substance: CLOZAPINE
     Indication: SCHIZOPHRENIA
     Dosage: 600 MG
     Route: 048
     Dates: start: 19930709, end: 2002
  2. QUETIAPINE [Suspect]
     Active Substance: QUETIAPINE
     Dosage: 1200 MG
     Route: 065
     Dates: start: 20070430
  3. QUETIAPINE [Suspect]
     Active Substance: QUETIAPINE
     Dosage: 800 MG, (200 MG MANE AND 600 MG NOCTE)
     Route: 065
  4. LITHIUM. [Suspect]
     Active Substance: LITHIUM
     Indication: PRODUCT USED FOR UNKNOWN INDICATION
     Dosage: 450 MG, NOCTE
     Route: 065
     Dates: start: 20070329, end: 20070404
  5. LITHIUM. [Suspect]
     Active Substance: LITHIUM
     Dosage: 1350 MG
     Route: 065
     Dates: start: 20070709
  6. RISPERIDONE. [Concomitant]
     Active Substance: RISPERIDONE
     Indication: PRODUCT USED FOR UNKNOWN INDICATION
     Dosage: 2 MG
     Route: 065
     Dates: start: 20070417
  7. LORAZEPAM. [Concomitant]
     Active Substance: LORAZEPAM
     Dosage: MG (8 TO 9)
     Route: 065
     Dates: start: 20070324
  8. QUETIAPINE [Suspect]
     Active Substance: QUETIAPINE
     Dosage: 1200 MG
     Route: 065
     Dates: start: 20070510
  9. QUETIAPINE [Suspect]
     Active Substance: QUETIAPINE
     Dosage: 700 MG
     Route: 065
     Dates: start: 20070518
  10. LITHIUM. [Suspect]
     Active Substance: LITHIUM
     Dosage: 1350 MG (450 MG MANE AND 900 MG NOCTE))
  11. LORAZEPAM. [Concomitant]
     Active Substance: LORAZEPAM
     Indication: PRODUCT USED FOR UNKNOWN INDICATION
     Dosage: MG (3 TO 6)
     Route: 065
     Dates: start: 20070322
  12. LORAZEPAM. [Concomitant]
     Active Substance: LORAZEPAM
     Dosage: MG (3 TO 5)
     Route: 065
     Dates: start: 20070329
  13. LORAZEPAM. [Concomitant]
     Active Substance: LORAZEPAM
     Dosage: MG (3 TO 5)
     Route: 065
     Dates: start: 20070403, end: 20070430
  14. QUETIAPINE [Suspect]
     Active Substance: QUETIAPINE
     Indication: PRODUCT USED FOR UNKNOWN INDICATION
     Dosage: 1000 MG, QD (400 MG MANE AND 600 MG NOCTE)
     Route: 065
     Dates: start: 20070322
  15. QUETIAPINE [Suspect]
     Active Substance: QUETIAPINE
     Dosage: 1200 MG
     Route: 065
     Dates: start: 20070324
  16. QUETIAPINE [Suspect]
     Active Substance: QUETIAPINE
     Dosage: 500 MG
     Route: 065
     Dates: start: 20070520
  17. PAROXETINE [Concomitant]
     Active Substance: PAROXETINE\PAROXETINE HYDROCHLORIDE
     Indication: PRODUCT USED FOR UNKNOWN INDICATION
     Dosage: 30 MG
     Route: 065
     Dates: start: 20070323, end: 20070507
  18. DIAZEPAM. [Concomitant]
     Active Substance: DIAZEPAM
     Dosage: 10 MG
     Route: 065
     Dates: start: 20070510, end: 20070522
  19. QUETIAPINE [Suspect]
     Active Substance: QUETIAPINE
     Dosage: 900 MG
     Route: 065
     Dates: start: 20070516
  20. QUETIAPINE [Suspect]
     Active Substance: QUETIAPINE
     Dosage: 600 MG
     Route: 065
     Dates: start: 20070724
  21. RISPERIDONE. [Concomitant]
     Active Substance: RISPERIDONE
     Dosage: 6 MG
     Route: 065
     Dates: start: 20070724
  22. ZUCLOPENTHIXOL [Concomitant]
     Active Substance: ZUCLOPENTHIXOL
     Indication: PRODUCT USED FOR UNKNOWN INDICATION
     Dosage: 600 MG, EACH FORTNIGHT
  23. CLOZAPINE. [Suspect]
     Active Substance: CLOZAPINE
     Indication: SCHIZOPHRENIA
     Dosage: UNK
     Route: 065
     Dates: start: 20010101, end: 20070215
  24. LITHIUM. [Suspect]
     Active Substance: LITHIUM
     Dosage: 900 MG
     Route: 065
     Dates: start: 20070628
  25. CLOPINE [Suspect]
     Active Substance: CLOZAPINE
     Dosage: UNK
     Route: 065
     Dates: start: 20070228
  26. DIAZEPAM. [Concomitant]
     Active Substance: DIAZEPAM
     Indication: PRODUCT USED FOR UNKNOWN INDICATION
     Dosage: 10 MG
     Route: 065
     Dates: start: 20070430
  27. RISPERIDONE. [Concomitant]
     Active Substance: RISPERIDONE
     Dosage: 3 MG
     Route: 065
     Dates: start: 20070430
  28. RISPERIDONE. [Concomitant]
     Active Substance: RISPERIDONE
     Dosage: 4 MG
     Route: 065
     Dates: start: 20070510
  29. RISPERIDONE. [Concomitant]
     Active Substance: RISPERIDONE
     Dosage: 6 MG
     Route: 065
     Dates: start: 20070516
  30. OLANZAPINE. [Concomitant]
     Active Substance: OLANZAPINE
     Indication: PRODUCT USED FOR UNKNOWN INDICATION
     Dosage: 5-10 MG, PRN
  31. QUETIAPINE [Suspect]
     Active Substance: QUETIAPINE
     Dosage: 1200 MG
     Route: 065
     Dates: start: 20070507
  32. QUETIAPINE [Suspect]
     Active Substance: QUETIAPINE
     Dosage: 600 MG
     Route: 065
     Dates: start: 20070522
  33. RISPERIDONE. [Concomitant]
     Active Substance: RISPERIDONE
     Dosage: 3 MG
     Route: 065
     Dates: start: 20070507
  34. DIAZEPAM. [Concomitant]
     Active Substance: DIAZEPAM
     Dosage: 10 MG
     Route: 065
     Dates: start: 20070507
  35. QUETIAPINE [Suspect]
     Active Substance: QUETIAPINE
     Dosage: 1000 MG
     Route: 065
     Dates: start: 20070514
  36. LITHIUM. [Suspect]
     Active Substance: LITHIUM
     Dosage: 450 MG
     Route: 065
     Dates: start: 20070621
  37. CLOPINE [Suspect]
     Active Substance: CLOZAPINE
     Indication: PRODUCT USED FOR UNKNOWN INDICATION
     Dosage: UNK
     Route: 065
     Dates: start: 20020327
  38. LORAZEPAM. [Concomitant]
     Active Substance: LORAZEPAM
     Dosage: MG (3 TO 6)
     Route: 065
     Dates: start: 20070326

REACTIONS (16)
  - Haemoglobin decreased [Recovered/Resolved]
  - Suicidal ideation [Unknown]
  - Neutropenia [Recovered/Resolved]
  - Hallucination, auditory [Unknown]
  - Disease recurrence [Unknown]
  - Depressive symptom [Unknown]
  - Agranulocytosis [Unknown]
  - Schizoaffective disorder [Unknown]
  - Pancytopenia [Unknown]
  - Thrombocytopenia [Recovered/Resolved]
  - Haematocrit decreased [Recovered/Resolved]
  - Mental impairment [Unknown]
  - Psychotic disorder [Unknown]
  - Acute psychosis [Unknown]
  - Neutropenia [Recovered/Resolved]
  - Platelet count decreased [Recovered/Resolved]

NARRATIVE: CASE EVENT DATE: 200612
